FAERS Safety Report 8539838-8 (Version None)
Quarter: 2012Q3

REPORT INFORMATION
  Report Type: 
  Country: None (occurrence: None)
  Receive Date: 20120726
  Receipt Date: 20120718
  Transmission Date: 20120928
  Serious: Yes (Disabling, Other)
  Sender: FDA-Public Use
  Company Number: US-ASTRAZENECA-2011SE38719

PATIENT
  Age: 70 Year
  Sex: Female

DRUGS (2)
  1. PLAVIX [Concomitant]
  2. CRESTOR [Suspect]
     Route: 048

REACTIONS (7)
  - MUSCULOSKELETAL DISCOMFORT [None]
  - OSTEOMYELITIS [None]
  - ROTATOR CUFF SYNDROME [None]
  - CARDIAC DISORDER [None]
  - BACK DISORDER [None]
  - NERVE INJURY [None]
  - PARESIS [None]
